FAERS Safety Report 12766577 (Version 1)
Quarter: 2016Q3

REPORT INFORMATION
  Report Type: Spontaneous
  Country: US (occurrence: US)
  Receive Date: 20160921
  Receipt Date: 20160921
  Transmission Date: 20161109
  Serious: Yes (Hospitalization, Other)
  Sender: FDA-Public Use
  Company Number: None

PATIENT
  Age: 59 Year
  Sex: Male

DRUGS (6)
  1. LYRICA [Suspect]
     Active Substance: PREGABALIN
     Indication: POST PROCEDURAL COMPLICATION
     Dosage: LYRICA 2X - BID - PO
     Route: 048
     Dates: start: 20160824, end: 20160825
  2. LYRICA [Suspect]
     Active Substance: PREGABALIN
     Indication: NERVE INJURY
     Dosage: LYRICA 2X - BID - PO
     Route: 048
     Dates: start: 20160824, end: 20160825
  3. GOODIES POWDERS [Concomitant]
  4. NORCO [Concomitant]
     Active Substance: ACETAMINOPHEN\HYDROCODONE BITARTRATE
  5. XANAX [Concomitant]
     Active Substance: ALPRAZOLAM
  6. LYRICA [Suspect]
     Active Substance: PREGABALIN
     Indication: KNEE ARTHROPLASTY
     Dosage: LYRICA 2X - BID - PO
     Route: 048
     Dates: start: 20160824, end: 20160825

REACTIONS (8)
  - Nausea [None]
  - Headache [None]
  - Dyspnoea [None]
  - Hyperhidrosis [None]
  - Heart rate increased [None]
  - Presyncope [None]
  - Flushing [None]
  - Vision blurred [None]

NARRATIVE: CASE EVENT DATE: 20160825
